FAERS Safety Report 5003956-1 (Version None)
Quarter: 2006Q2

REPORT INFORMATION
  Report Type: 
  Country: None (occurrence: None)
  Receive Date: 20060517
  Receipt Date: 20060306
  Transmission Date: 20061013
  Serious: Yes (Other)
  Sender: FDA-Public Use
  Company Number: CA-SANOFI-SYNTHELABO-F01200600653

PATIENT
  Sex: Male

DRUGS (11)
  1. OXALIPLATIN [Suspect]
     Indication: COLON CANCER
     Route: 042
  2. FLUOROURACIL [Suspect]
     Dosage: 872 MG BOLUS, 1308.5 MG INFUSION
     Route: 042
  3. LEUCOVORIN [Suspect]
     Route: 042
  4. AVASTIN [Suspect]
     Route: 042
     Dates: end: 20060301
  5. IRON [Concomitant]
     Dosage: UNK
     Route: 065
     Dates: start: 20050815
  6. MULTIVITAMIN NOS [Concomitant]
     Dosage: UNK
     Route: 065
     Dates: start: 20050815
  7. DIOVOL [Concomitant]
     Dosage: UNK
     Route: 065
     Dates: start: 20051015
  8. PARIET [Concomitant]
     Dosage: UNK
     Route: 065
     Dates: start: 20051111
  9. COLACE [Concomitant]
     Dosage: UNK
     Route: 065
     Dates: start: 20051109
  10. METHOCARBAMOL [Concomitant]
     Dosage: UNK
     Route: 065
     Dates: start: 20060211
  11. TYLENOL (CAPLET) [Concomitant]
     Dosage: UNK
     Route: 065
     Dates: start: 20060211

REACTIONS (1)
  - THROMBOSIS [None]
